FAERS Safety Report 8129707-X (Version None)
Quarter: 2011Q4

REPORT INFORMATION
  Report Type: 
  Country: None (occurrence: None)
  Receive Date: 20111227
  Receipt Date: 20111114
  Transmission Date: 20120403
  Serious: No
  Sender: FDA-Public Use
  Company Number: PHEH2011US009571

PATIENT
  Age: 37 Year
  Sex: Female
  Weight: 61.2 kg

DRUGS (1)
  1. GILENYA [Suspect]
     Indication: MULTIPLE SCLEROSIS
     Dosage: 0.5 MG, QD, ORAL
     Route: 048
     Dates: start: 20110701

REACTIONS (6)
  - CONTUSION [None]
  - EXCORIATION [None]
  - LYMPHADENOPATHY [None]
  - ACNE [None]
  - IMPAIRED HEALING [None]
  - LACERATION [None]
